FAERS Safety Report 14843330 (Version 1)
Quarter: 2018Q2

REPORT INFORMATION
  Report Type: Spontaneous
  Country: FR (occurrence: FR)
  Receive Date: 20180503
  Receipt Date: 20180503
  Transmission Date: 20180711
  Serious: Yes (Other)
  Sender: FDA-Public Use
  Company Number: FR-MYLANLABS-2018M1027663

PATIENT

DRUGS (3)
  1. AMIODARONE [Suspect]
     Active Substance: AMIODARONE
     Indication: TACHYCARDIA FOETAL
     Dosage: 200 MG, QD
     Route: 064
  2. AMIODARONE [Suspect]
     Active Substance: AMIODARONE
     Dosage: 600 MG, Q8H
     Route: 064
  3. DIGOXIN. [Suspect]
     Active Substance: DIGOXIN
     Indication: HYDROPS FOETALIS
     Dosage: 0.25 MG, Q8H
     Route: 064

REACTIONS (4)
  - Condition aggravated [Recovered/Resolved]
  - Tachycardia foetal [Unknown]
  - Foetal exposure during pregnancy [Recovered/Resolved]
  - Hydrops foetalis [Unknown]
